FAERS Safety Report 20053679 (Version 1)
Quarter: 2021Q4

REPORT INFORMATION
  Report Type: Report from Study
  Country: IE (occurrence: None)
  Receive Date: 20211110
  Receipt Date: 20211110
  Transmission Date: 20220303
  Serious: Yes (Congenital Anomaly)
  Sender: FDA-Public Use
  Company Number: IE-Unichem Pharmaceuticals (USA) Inc-UCM202111-001023

PATIENT
  Age: 9 Year
  Sex: Male

DRUGS (1)
  1. DIVALPROEX SODIUM [Suspect]
     Active Substance: DIVALPROEX SODIUM
     Indication: Foetal exposure during pregnancy
     Dosage: UNKNOWN

REACTIONS (1)
  - Foetal anticonvulsant syndrome [Unknown]
